FAERS Safety Report 5165798-6 (Version None)
Quarter: 2006Q4

REPORT INFORMATION
  Report Type: 
  Country: None (occurrence: None)
  Receive Date: 20061128
  Receipt Date: 20061106
  Transmission Date: 20070319
  Serious: Yes (Hospitalization)
  Sender: FDA-Public Use
  Company Number: 225649

PATIENT
  Sex: Male

DRUGS (5)
  1. RAPTIVA [Suspect]
     Indication: PSORIASIS
     Dosage: 85 MG, 1/WEEK, SUBCUTANEOUS
     Route: 058
     Dates: start: 20050901
  2. OMEPRAZOLE [Concomitant]
  3. ENBREL [Concomitant]
  4. CORTICOSTEROIDS NOS        (UNK INGREDIENTS) [Concomitant]
  5. ANTIDEPRESSANTS                  (ANTIDEPRESSANTS) [Concomitant]

REACTIONS (8)
  - ALOPECIA [None]
  - ARTHRITIS [None]
  - CONDITION AGGRAVATED [None]
  - ECZEMA [None]
  - HEPATITIS ACUTE [None]
  - PSORIASIS [None]
  - RASH [None]
  - SOMNOLENCE [None]
